FAERS Safety Report 26218758 (Version 1)
Quarter: 2025Q4

REPORT INFORMATION
  Report Type: Report from Study
  Country: US (occurrence: US)
  Receive Date: 20251231
  Receipt Date: 20251231
  Transmission Date: 20260117
  Serious: No
  Sender: PFIZER
  Company Number: US-PFIZER INC-PV202500131333

PATIENT
  Age: 10 Year
  Sex: Male
  Weight: 42.7 kg

DRUGS (3)
  1. GENOTROPIN [Suspect]
     Active Substance: SOMATROPIN
     Indication: Growth hormone deficiency
     Dosage: 1.8 MG, INJECTED DAILY
  2. GENOTROPIN [Suspect]
     Active Substance: SOMATROPIN
     Indication: Hypopituitarism
     Dosage: 1.8 MG
     Dates: start: 202511
  3. GENOTROPIN [Suspect]
     Active Substance: SOMATROPIN
     Indication: Precocious puberty
     Dosage: 2.0 MG, DAILY

REACTIONS (3)
  - Device power source issue [Unknown]
  - Device information output issue [Unknown]
  - Device leakage [Unknown]
